FAERS Safety Report 4355306-1 (Version None)
Quarter: 2004Q2

REPORT INFORMATION
  Report Type: 
  Country: None (occurrence: None)
  Receive Date: 20040510
  Receipt Date: 20031215
  Transmission Date: 20050107
  Serious: Yes (Death)
  Sender: FDA-Public Use
  Company Number: ES-ROCHE-354007

PATIENT
  Age: 76 Year
  Sex: Male
  Weight: 75.5 kg

DRUGS (2)
  1. CAPECITABINE [Suspect]
     Dosage: 3 WEEK TREATMENT AND ONE WEEK REST.
     Route: 048
     Dates: start: 20031120
  2. OXALIPLATIN [Suspect]
     Route: 042
     Dates: start: 20031120, end: 20031120

REACTIONS (7)
  - ANAEMIA [None]
  - DERMATITIS [None]
  - FEBRILE NEUTROPENIA [None]
  - HAEMORRHAGE [None]
  - HYPOPROTEINAEMIA [None]
  - STOMATITIS [None]
  - THROMBOCYTOPENIA [None]
